FAERS Safety Report 9988959 (Version 1)
Quarter: 2014Q1

REPORT INFORMATION
  Report Type: Report from Study
  Country: US (occurrence: US)
  Receive Date: 20140310
  Receipt Date: 20140310
  Transmission Date: 20141002
  Serious: No
  Sender: FDA-Public Use
  Company Number: US-ABBVIE-13P-163-1128233-00

PATIENT
  Age: 67 Year
  Sex: Female
  Weight: 83.99 kg

DRUGS (6)
  1. HUMIRA [Suspect]
     Indication: RHEUMATOID ARTHRITIS
     Route: 058
     Dates: start: 2003, end: 201308
  2. OXYBUTYNIN [Concomitant]
     Indication: URINARY INCONTINENCE
     Dosage: PRN
  3. FOLIC ACID [Concomitant]
     Indication: RHEUMATOID ARTHRITIS
  4. VITAMIN D [Concomitant]
     Indication: VITAMIN SUPPLEMENTATION
  5. OMEGA 3 [Concomitant]
     Indication: VITAMIN SUPPLEMENTATION
  6. LEDERTREXATE /00113801/ [Suspect]

REACTIONS (5)
  - Gait disturbance [Recovered/Resolved]
  - Urinary tract infection [Recovered/Resolved]
  - Arthritis [Recovered/Resolved]
  - Arthralgia [Recovered/Resolved]
  - Local swelling [Recovered/Resolved]
